FAERS Safety Report 17349899 (Version 2)
Quarter: 2020Q2

REPORT INFORMATION
  Report Type: Spontaneous
  Country: US (occurrence: US)
  Receive Date: 20200130
  Receipt Date: 20200508
  Transmission Date: 20200713
  Serious: Yes (Other)
  Sender: FDA-Public Use
  Company Number: US-BAYER-2020-016814

PATIENT
  Sex: Female
  Weight: 68.9 kg

DRUGS (1)
  1. KYLEENA [Suspect]
     Active Substance: LEVONORGESTREL
     Indication: CONTRACEPTION
     Dosage: 20 MCG/24HR, CONT
     Route: 015
     Dates: start: 20180126, end: 20200117

REACTIONS (5)
  - Polycystic ovaries [None]
  - Device dislocation [Recovered/Resolved]
  - Coital bleeding [None]
  - Pelvic pain [None]
  - Dyspareunia [None]
